FAERS Safety Report 6981779-1 (Version None)
Quarter: 2010Q3

REPORT INFORMATION
  Report Type: 
  Country: None (occurrence: None)
  Receive Date: 20100914
  Receipt Date: 20091003
  Transmission Date: 20110219
  Serious: No
  Sender: FDA-Public Use
  Company Number: US-PFIZER INC-2009253841

PATIENT
  Age: 68 Year

DRUGS (1)
  1. LYRICA [Suspect]

REACTIONS (2)
  - AMNESIA [None]
  - RESTLESSNESS [None]
